FAERS Safety Report 5785726-X (Version None)
Quarter: 2008Q2

REPORT INFORMATION
  Report Type: 
  Country: None (occurrence: None)
  Receive Date: 20080624
  Receipt Date: 20070626
  Transmission Date: 20081010
  Serious: No
  Sender: FDA-Public Use
  Company Number: US-ASTRAZENECA-2007UW15164

PATIENT
  Age: 69 Year
  Sex: Female
  Weight: 61.2 kg

DRUGS (7)
  1. PULMICORT [Suspect]
     Indication: ASTHMA
     Route: 055
  2. PULMICORT [Suspect]
     Indication: BRONCHIECTASIS
     Route: 055
  3. MAXAIR [Concomitant]
  4. STALEVO 100 [Concomitant]
  5. HYZAAR [Concomitant]
  6. DILTIAZEM [Concomitant]
  7. OXYGEN [Concomitant]

REACTIONS (3)
  - ABDOMINAL DISTENSION [None]
  - FORMICATION [None]
  - PHARMACEUTICAL PRODUCT COMPLAINT [None]
